FAERS Safety Report 6223289-5 (Version None)
Quarter: 2009Q2

REPORT INFORMATION
  Report Type: 
  Country: None (occurrence: None)
  Receive Date: 20090611
  Receipt Date: 20090603
  Transmission Date: 20091009
  Serious: Yes (Hospitalization)
  Sender: FDA-Public Use
  Company Number: CO-ELI_LILLY_AND_COMPANY-CO200906001334

PATIENT
  Age: 50 Year
  Sex: Male

DRUGS (4)
  1. BYETTA [Suspect]
     Indication: TYPE 2 DIABETES MELLITUS
     Dosage: 10 UG, 2/D
     Route: 058
     Dates: start: 20090301, end: 20090520
  2. LOSARTAN POTASSIUM [Concomitant]
     Dosage: UNK, DAILY (1/D)
     Route: 065
  3. AMLODIPINE [Concomitant]
     Dosage: UNK, 2/D
     Route: 065
  4. THEOPHYLLINE [Concomitant]
     Dosage: UNK, 2/D
     Route: 065

REACTIONS (5)
  - BLOOD GLUCOSE DECREASED [None]
  - DIZZINESS [None]
  - FEELING COLD [None]
  - INTENTIONAL DRUG MISUSE [None]
  - PALPITATIONS [None]
